FAERS Safety Report 8183158-0 (Version None)
Quarter: 2012Q1

REPORT INFORMATION
  Report Type: 
  Country: None (occurrence: None)
  Receive Date: 20120201
  Receipt Date: 20101221
  Transmission Date: 20120608
  Serious: No
  Sender: FDA-Public Use
  Company Number: 260689USA

PATIENT
  Age: 54 Year
  Sex: Male

DRUGS (1)
  1. PROPOXYPHENE NAPSYLATE AND ACETAMINOPHEN [Suspect]
     Dates: start: 19970101

REACTIONS (2)
  - PALPITATIONS [None]
  - FATIGUE [None]
